FAERS Safety Report 9643152 (Version 1)
Quarter: 2013Q4

REPORT INFORMATION
  Report Type: Report from Study
  Country: US (occurrence: US)
  Receive Date: 20131024
  Receipt Date: 20131024
  Transmission Date: 20140711
  Serious: Yes (Other)
  Sender: FDA-Public Use
  Company Number: PHEH2013US021942

PATIENT
  Age: 28 Year
  Sex: Female

DRUGS (3)
  1. TEGRETOL [Suspect]
     Indication: EPILEPSY
     Dosage: 1000 MG, UNK
     Dates: end: 20120510
  2. LEVETIRACETAM [Suspect]
     Indication: EPILEPSY
     Dosage: 3000 MG, UNK
     Dates: start: 20120412
  3. ZONISAMIDE [Suspect]
     Indication: EPILEPSY
     Dosage: 200 MG, UNK
     Dates: start: 20120510

REACTIONS (2)
  - Abortion incomplete [Unknown]
  - Maternal exposure during pregnancy [Unknown]
